FAERS Safety Report 22283179 (Version 1)
Quarter: 2023Q2

REPORT INFORMATION
  Report Type: Spontaneous
  Country: US (occurrence: US)
  Receive Date: 20230504
  Receipt Date: 20230504
  Transmission Date: 20230722
  Serious: No
  Sender: FDA-Public Use
  Company Number: US-MICRO LABS LIMITED-ML2023-01931

PATIENT
  Sex: Female

DRUGS (1)
  1. TRAVOPROST [Suspect]
     Active Substance: TRAVOPROST
     Indication: Product used for unknown indication
     Dosage: 1 DROP IN EACH EYE EVERY EVENING
     Route: 047

REACTIONS (1)
  - Incorrect dose administered [Unknown]
